FAERS Safety Report 8972261 (Version 2)
Quarter: 2013Q1

REPORT INFORMATION
  Report Type: Spontaneous
  Country: US (occurrence: US)
  Receive Date: 20121219
  Receipt Date: 20130327
  Transmission Date: 20140127
  Serious: Yes (Other)
  Sender: FDA-Public Use
  Company Number: US-PFIZER INC-2012318207

PATIENT
  Age: 63 Year
  Sex: Female

DRUGS (4)
  1. LYRICA [Suspect]
     Indication: NEUROPATHY PERIPHERAL
     Dosage: UNK
     Dates: start: 2012
  2. LYRICA [Suspect]
     Indication: PAIN
  3. REVLIMID [Suspect]
     Indication: PLASMA CELL MYELOMA
     Dosage: 10 MG, DAILY X 21 DAYS EVERY 28 DAYS
     Route: 048
     Dates: start: 20111130
  4. REVLIMID [Suspect]
     Dosage: 10 MG, DAILY X 21 DAYS EVERY 28 DAYS
     Route: 048
     Dates: start: 20120127

REACTIONS (12)
  - Balance disorder [Not Recovered/Not Resolved]
  - Nerve injury [Unknown]
  - Neuropathy peripheral [Not Recovered/Not Resolved]
  - Dizziness [Not Recovered/Not Resolved]
  - Local swelling [Not Recovered/Not Resolved]
  - Fatigue [Not Recovered/Not Resolved]
  - Bone pain [Unknown]
  - Fall [Not Recovered/Not Resolved]
  - Pain in extremity [Not Recovered/Not Resolved]
  - Cardiac disorder [Unknown]
  - Weight increased [Unknown]
  - Blood immunoglobulin E abnormal [Unknown]
